FAERS Safety Report 6613797-7 (Version None)
Quarter: 2010Q1

REPORT INFORMATION
  Report Type: 
  Country: None (occurrence: None)
  Receive Date: 20100226
  Receipt Date: 20100216
  Transmission Date: 20100710
  Serious: Yes (Other)
  Sender: FDA-Public Use
  Company Number: ALA_00363_2009

PATIENT
  Sex: Female

DRUGS (1)
  1. TRILYTE [Suspect]
     Indication: COLONOSCOPY
     Dosage: 2 OUNCES ORAL
     Route: 048
     Dates: start: 20080227, end: 20080227

REACTIONS (6)
  - DYSPHAGIA [None]
  - FOOD ALLERGY [None]
  - HYPERSENSITIVITY [None]
  - LOSS OF CONSCIOUSNESS [None]
  - MOVEMENT DISORDER [None]
  - THROAT TIGHTNESS [None]
